FAERS Safety Report 7929849-5 (Version None)
Quarter: 2011Q4

REPORT INFORMATION
  Report Type: 
  Country: None (occurrence: None)
  Receive Date: 20111121
  Receipt Date: 20111115
  Transmission Date: 20120403
  Serious: No
  Sender: FDA-Public Use
  Company Number: US-PFIZER INC-2011280820

PATIENT
  Sex: Male

DRUGS (2)
  1. GENOTROPIN [Suspect]
     Dosage: 1.2 MG, UNK
  2. GENOTROPIN [Suspect]
     Dosage: 0.6 MG, UNK

REACTIONS (2)
  - FAILURE TO THRIVE [None]
  - MIGRAINE [None]
